FAERS Safety Report 10652521 (Version 1)
Quarter: 2014Q4

REPORT INFORMATION
  Report Type: Spontaneous
  Country: US (occurrence: None)
  Receive Date: 20141205
  Receipt Date: 20141205
  Transmission Date: 20150529
  Serious: Yes (Hospitalization, Other)
  Sender: FDA-Public Use
  Company Number: USA-2014111558

PATIENT
  Age: 69 Year
  Sex: Male
  Weight: 81.6 kg

DRUGS (17)
  1. VELCADE [Concomitant]
     Active Substance: BORTEZOMIB
  2. DIFLUCAN [Concomitant]
     Active Substance: FLUCONAZOLE
  3. ASPIRIN (ACETYLSALICYLIC ACID) [Concomitant]
     Active Substance: ASPIRIN
  4. VITAMIN C [Concomitant]
     Active Substance: ASCORBIC ACID
  5. BACTRIM (SULFAMETHOZLE, TRIMETHOPRIM) UNKNOWN [Concomitant]
  6. MULTIVITAMINS (ERGOCALCIFEROL,A SCORBIC ACID, FOLIC ACID, THAIMINE HYDROCHLORIDE, RETINOL, RIBOFLAVIN, NICOTINAMIDE, PANTHENOL) [Concomitant]
  7. ACYCLOVIR ( ACICLOVIR) [Concomitant]
  8. LEVOTHYROXINE (LEVOTHYROXINE) [Concomitant]
     Active Substance: LEVOTHYROXINE
  9. LOVENOX [Concomitant]
     Active Substance: ENOXAPARIN SODIUM
  10. ZOMETA  (ZOELNDRONIC ACID) [Concomitant]
  11. FERROUS SULFATE [Concomitant]
     Active Substance: FERROUS SULFATE\FERROUS SULFATE, DRIED
  12. IMODIUM (LOPERAMIDE HYDROCHLORIDE) [Concomitant]
  13. DEXAMETHASONE (DEXAMETHASONE) [Concomitant]
     Active Substance: DEXAMETHASONE
  14. DOXYCYCLINE. [Concomitant]
     Active Substance: DOXYCYCLINE
  15. HYDROCODONE-ACETAMINOPHEN (PARACETAMOL, HYDROCODONE BITARTRATE) [Concomitant]
  16. VITAMIN D NOS  (VITAMIN D NOS) [Concomitant]
  17. POMALYST [Suspect]
     Active Substance: POMALIDOMIDE
     Indication: PLASMA CELL MYELOMA
     Route: 048
     Dates: start: 20140427

REACTIONS (4)
  - Deep vein thrombosis [None]
  - Full blood count decreased [None]
  - Weight decreased [None]
  - Exfoliative rash [None]

NARRATIVE: CASE EVENT DATE: 20141028
